FAERS Safety Report 14487576 (Version 1)
Quarter: 2018Q1

REPORT INFORMATION
  Report Type: Report from Study
  Country: JP (occurrence: JP)
  Receive Date: 20180205
  Receipt Date: 20180205
  Transmission Date: 20180509
  Serious: Yes (Hospitalization)
  Sender: FDA-Public Use
  Company Number: JP-PFIZER INC-2018049226

PATIENT
  Age: 31 Year
  Sex: Female
  Weight: 59 kg

DRUGS (3)
  1. SIROLIMUS. [Suspect]
     Active Substance: SIROLIMUS
     Indication: LYMPHANGIOLEIOMYOMATOSIS
     Dosage: 1 MG, DAILY
     Route: 048
     Dates: start: 20160128, end: 20160826
  2. MUCOSTA [Concomitant]
     Active Substance: REBAMIPIDE
     Indication: LYMPHANGIOLEIOMYOMATOSIS
     Dosage: UNK
     Route: 048
  3. SIROLIMUS. [Suspect]
     Active Substance: SIROLIMUS
     Dosage: 1 MG, DAILY
     Route: 048
     Dates: start: 20161012

REACTIONS (2)
  - Ovarian neoplasm [Recovered/Resolved]
  - Stomatitis [Recovered/Resolved]

NARRATIVE: CASE EVENT DATE: 20160330
